FAERS Safety Report 21700176 (Version 1)
Quarter: 2022Q4

REPORT INFORMATION
  Report Type: Spontaneous
  Country: US (occurrence: None)
  Receive Date: 20221207
  Receipt Date: 20221207
  Transmission Date: 20230113
  Serious: Yes (Hospitalization)
  Sender: FDA-Public Use
  Company Number: None

PATIENT
  Age: 52 Year
  Sex: Male
  Weight: 220 kg

DRUGS (1)
  1. RIVAROXABAN [Suspect]
     Active Substance: RIVAROXABAN
     Dosage: 1 TAB  PM PO?
     Route: 048
     Dates: start: 20160822, end: 20180802

REACTIONS (1)
  - Thrombosis [None]

NARRATIVE: CASE EVENT DATE: 20180728
